FAERS Safety Report 4821982-X (Version None)
Quarter: 2005Q4

REPORT INFORMATION
  Report Type: 
  Country: None (occurrence: None)
  Receive Date: 20051107
  Receipt Date: 20051101
  Transmission Date: 20060501
  Serious: Yes (Other)
  Sender: FDA-Public Use
  Company Number: US-BRISTOL-MYERS SQUIBB COMPANY-13163118

PATIENT
  Sex: Female
  Weight: 73 kg

DRUGS (1)
  1. EXCEDRIN (MIGRAINE) [Suspect]
     Route: 048

REACTIONS (1)
  - DEPENDENCE [None]
